FAERS Safety Report 4353177-0 (Version None)
Quarter: 2004Q2

REPORT INFORMATION
  Report Type: 
  Country: None (occurrence: None)
  Receive Date: 20040504
  Receipt Date: 20040504
  Transmission Date: 20050107
  Serious: Yes (Other)
  Sender: FDA-Public Use
  Company Number: None

PATIENT
  Age: 67 Year
  Sex: Female
  Weight: 115.6672 kg

DRUGS (1)
  1. NITROGLYCEMIA PATCH [Suspect]
     Indication: CORONARY ARTERY DISEASE
     Dosage: 0.4 MG APPLIED DAILY

REACTIONS (2)
  - APPLICATION SITE DERMATITIS [None]
  - RASH MACULO-PAPULAR [None]
